FAERS Safety Report 10166111 (Version 2)
Quarter: 2014Q2

REPORT INFORMATION
  Report Type: Report from Study
  Country: US (occurrence: US)
  Receive Date: 20140512
  Receipt Date: 20140512
  Transmission Date: 20141212
  Serious: Yes (Hospitalization, Other)
  Sender: FDA-Public Use
  Company Number: US-ROCHE-1346010

PATIENT
  Sex: Male

DRUGS (6)
  1. PEGASYS [Suspect]
     Indication: CHRONIC HEPATITIS C
     Route: 065
     Dates: start: 20131025
  2. RIBAPAK [Suspect]
     Indication: CHRONIC HEPATITIS C
     Dosage: BRAND: KADMON PHARMACUETICALS, DOSE: IN DIVIDED DOSES 600/600
     Route: 065
     Dates: start: 20131025
  3. INCIVEK [Suspect]
     Indication: CHRONIC HEPATITIS C
     Dosage: BRAND: VERTEX PHARMACEUTICAL
     Route: 065
     Dates: start: 20131025, end: 20140117
  4. WELLBUTRIN [Concomitant]
     Indication: DEPRESSION
     Dosage: EVERY MORNING.
     Route: 065
  5. ABILIFY [Concomitant]
     Indication: DEPRESSION
     Dosage: EVERY MORNING
     Route: 065
  6. ATRIPLA [Concomitant]
     Dosage: DOSE: 600/200/300 AT BEDTIME
     Route: 065

REACTIONS (10)
  - Bipolar disorder [Unknown]
  - Depression [Unknown]
  - Dental caries [Unknown]
  - Fatigue [Unknown]
  - Tongue oedema [Unknown]
  - Glossodynia [Recovered/Resolved]
  - Contrast media allergy [Unknown]
  - Pruritus [Recovered/Resolved]
  - Pneumonia [Recovered/Resolved]
  - Furuncle [Recovering/Resolving]
